FAERS Safety Report 8425367-9 (Version None)
Quarter: 2012Q2

REPORT INFORMATION
  Report Type: 
  Country: None (occurrence: None)
  Receive Date: 20120611
  Receipt Date: 20120604
  Transmission Date: 20120825
  Serious: No
  Sender: FDA-Public Use
  Company Number: US-BAYER-2012-057026

PATIENT
  Sex: Female

DRUGS (4)
  1. NORTRIPTYLINE HCL [Concomitant]
  2. LORAZEPAM [Concomitant]
  3. ALEVE (CAPLET) [Suspect]
     Indication: TOOTHACHE
     Dosage: 2 TABLETS ONCE DAILY - 24 COUNT
     Route: 048
     Dates: start: 20120602
  4. ANTIHYPERTENSIVES [Concomitant]

REACTIONS (2)
  - SOMNOLENCE [None]
  - SLEEP DISORDER [None]
